FAERS Safety Report 5500418-X (Version None)
Quarter: 2007Q4

REPORT INFORMATION
  Report Type: 
  Country: None (occurrence: None)
  Receive Date: 20071029
  Receipt Date: 20071024
  Transmission Date: 20080405
  Serious: Yes (Hospitalization)
  Sender: FDA-Public Use
  Company Number: US-BRISTOL-MYERS SQUIBB COMPANY-13955109

PATIENT
  Age: 77 Year
  Sex: Male
  Weight: 98 kg

DRUGS (20)
  1. CARBOPLATIN [Suspect]
     Indication: NON-SMALL CELL LUNG CANCER
     Dates: start: 20070501, end: 20070501
  2. ALIMTA [Suspect]
     Indication: NON-SMALL CELL LUNG CANCER
     Dates: start: 20070501, end: 20070501
  3. RADIATION THERAPY [Suspect]
     Indication: NON-SMALL CELL LUNG CANCER
     Dosage: 1 DOSAGEFORM = 70 GY. NUMBER OF FRACTION 35.
     Dates: start: 20070305, end: 20070305
  4. IPRATROPIUM + ALBUTEROL [Concomitant]
     Dosage: 2 DOSAGEFORM = 2 PUFFS, 90/18 MCG.
     Route: 055
  5. CLONIDINE [Concomitant]
  6. CODEINE + GUAIFENESIN [Concomitant]
     Dosage: CODEINE 10/GUAIFENESIN 10 MG. 2 DOSAGEFORM = TWO TEASPOONS, 4 OR 5 ML.
  7. CYANOCOBALAMIN [Concomitant]
     Dosage: 1 DOSAGEFORM = 1000 MCG/ML INJECTION WITH EVERY 3RD CYCLE OF CHEMO(LAST GIVEN 01MAY07 WITH CYCLE 6.
  8. DEXAMETHASONE 0.5MG TAB [Concomitant]
     Dosage: GIVEN THREE DAYS BEFORE CHEMO(DAY BEFORE, DAY OF + DAY AFTER CHEMO).
     Route: 048
  9. FOLIC ACID [Concomitant]
  10. FORMOTEROL FUMARATE [Concomitant]
     Route: 055
  11. HYDROCHLOROTHIAZIDE [Concomitant]
  12. LISINOPRIL [Concomitant]
  13. MAG-OX [Concomitant]
  14. MOMETASONE FUROATE [Concomitant]
     Dosage: 2 DOSAGEFORM = 2 PUFFS, 220MCG. ORAL INHALATION
     Route: 055
  15. OMEPRAZOLE [Concomitant]
  16. PAROXETINE HCL [Concomitant]
  17. POTASSIUM CHLORIDE [Concomitant]
  18. PROCHLORPERAZINE [Concomitant]
     Indication: NAUSEA
     Dosage: TAKING EVERY 4 HOURS IF NECESSARY.
  19. SIMVASTATIN [Concomitant]
  20. VERAPAMIL [Concomitant]
     Route: 048

REACTIONS (4)
  - DEHYDRATION [None]
  - DIARRHOEA [None]
  - GRANULOCYTE COUNT DECREASED [None]
  - NAUSEA [None]
